FAERS Safety Report 5922496-6 (Version None)
Quarter: 2008Q4

REPORT INFORMATION
  Report Type: 
  Country: None (occurrence: None)
  Receive Date: 20081017
  Receipt Date: 20081006
  Transmission Date: 20090506
  Serious: Yes (Hospitalization)
  Sender: FDA-Public Use
  Company Number: PHHY2008SG22003

PATIENT
  Sex: Female
  Weight: 49 kg

DRUGS (2)
  1. EXJADE [Suspect]
     Indication: IRON OVERLOAD
     Dosage: 1000 MG, QD
     Route: 048
     Dates: start: 20080723, end: 20080915
  2. EXJADE [Suspect]
     Indication: THALASSAEMIA ALPHA
     Dosage: 1000 MG, QD
     Route: 048
     Dates: start: 20080907, end: 20080915

REACTIONS (13)
  - AGRANULOCYTOSIS [None]
  - BLOOD CULTURE POSITIVE [None]
  - DYSPNOEA [None]
  - FATIGUE [None]
  - LEUKOPENIA [None]
  - MALAISE [None]
  - PALLOR [None]
  - PALPITATIONS [None]
  - PANCYTOPENIA [None]
  - PARVOVIRUS INFECTION [None]
  - PYREXIA [None]
  - TONSILLITIS [None]
  - URINARY TRACT INFECTION [None]
